FAERS Safety Report 8467900-7 (Version None)
Quarter: 2012Q2

REPORT INFORMATION
  Report Type: 
  Country: None (occurrence: None)
  Receive Date: 20120626
  Receipt Date: 20120611
  Transmission Date: 20120825
  Serious: Yes (Hospitalization, Other)
  Sender: FDA-Public Use
  Company Number: DK-WATSON-2012-10367

PATIENT
  Sex: Female

DRUGS (4)
  1. LISINOPRIL [Suspect]
     Indication: PRODUCT USED FOR UNKNOWN INDICATION
     Route: 065
  2. NORETHINDRONE AND ESTRADIOL [Concomitant]
     Indication: PRODUCT USED FOR UNKNOWN INDICATION
     Route: 065
  3. ADALAT [Concomitant]
     Indication: PRODUCT USED FOR UNKNOWN INDICATION
     Route: 065
  4. VALSARTAN  AND HYDROCHLOROTHIAZIDE [Suspect]
     Indication: PRODUCT USED FOR UNKNOWN INDICATION
     Dosage: UNK
     Route: 065
     Dates: start: 20110228

REACTIONS (12)
  - DIZZINESS [None]
  - ALOPECIA [None]
  - HEADACHE [None]
  - PRURITUS [None]
  - HYPOACUSIS [None]
  - RASH [None]
  - TINNITUS [None]
  - NYSTAGMUS [None]
  - HYPERSENSITIVITY [None]
  - NAUSEA [None]
  - MUSCLE TIGHTNESS [None]
  - MENIERE'S DISEASE [None]
